FAERS Safety Report 23160105 (Version 1)
Quarter: 2023Q4

REPORT INFORMATION
  Report Type: Spontaneous
  Country: CA (occurrence: CA)
  Receive Date: 20231108
  Receipt Date: 20231108
  Transmission Date: 20240110
  Serious: No
  Sender: FDA-Public Use
  Company Number: CA-SCALL-2023-CA-063111-1

PATIENT
  Age: 86 Year
  Sex: Male
  Weight: 60 kg

DRUGS (7)
  1. DUTASTERIDE [Suspect]
     Active Substance: DUTASTERIDE
     Route: 065
     Dates: start: 20220616, end: 20221008
  2. LIPITOR [Concomitant]
     Active Substance: ATORVASTATIN CALCIUM
  3. EZETIMIBE [Concomitant]
     Active Substance: EZETIMIBE
  4. PLAVIX [Concomitant]
     Active Substance: CLOPIDOGREL BISULFATE
  5. NITROGLYCERIN [Concomitant]
     Active Substance: NITROGLYCERIN
  6. Actace [Concomitant]
     Dosage: 5 MG
  7. FLOMAX [Concomitant]
     Active Substance: TAMSULOSIN HYDROCHLORIDE
     Dosage: 0.8 MG

REACTIONS (3)
  - Breast enlargement [Not Recovered/Not Resolved]
  - Genital rash [Not Recovered/Not Resolved]
  - Breast tenderness [Not Recovered/Not Resolved]
